FAERS Safety Report 15757547 (Version 1)
Quarter: 2018Q4

REPORT INFORMATION
  Report Type: Spontaneous
  Country: CZ (occurrence: CZ)
  Receive Date: 20181224
  Receipt Date: 20181224
  Transmission Date: 20190205
  Serious: Yes (Hospitalization)
  Sender: FDA-Public Use
  Company Number: CZ-MYLANLABS-2018M1093313

PATIENT
  Age: 20 Year
  Sex: Male

DRUGS (1)
  1. CABERGOLINE. [Suspect]
     Active Substance: CABERGOLINE
     Indication: PROLACTIN-PRODUCING PITUITARY TUMOUR
     Dosage: 1 MILLIGRAM
     Route: 065

REACTIONS (1)
  - Cerebrospinal fluid leakage [Recovered/Resolved]
